FAERS Safety Report 22777374 (Version 4)
Quarter: 2025Q1

REPORT INFORMATION
  Report Type: Report from Study
  Country: US (occurrence: US)
  Receive Date: 20230802
  Receipt Date: 20250221
  Transmission Date: 20250408
  Serious: Yes (Hospitalization, Other)
  Sender: TAKEDA
  Company Number: US-TAKEDA-2023TUS073198

PATIENT
  Sex: Female

DRUGS (2)
  1. VEDOLIZUMAB [Suspect]
     Active Substance: VEDOLIZUMAB
     Indication: Crohn^s disease
  2. VEDOLIZUMAB [Suspect]
     Active Substance: VEDOLIZUMAB
     Indication: Colitis ulcerative

REACTIONS (3)
  - Inflammatory bowel disease [Unknown]
  - Product dose omission issue [Unknown]
  - Malaise [Unknown]
